FAERS Safety Report 6141537-7 (Version None)
Quarter: 2009Q2

REPORT INFORMATION
  Report Type: 
  Country: None (occurrence: None)
  Receive Date: 20090401
  Receipt Date: 20090401
  Transmission Date: 20091009
  Serious: Yes (Life-Threatening, Hospitalization)
  Sender: FDA-Public Use
  Company Number: None

PATIENT
  Age: 67 Year
  Sex: Male
  Weight: 97.0698 kg

DRUGS (1)
  1. ENALAPRIL MALEATE [Suspect]
     Indication: HYPERTENSION
     Dosage: 1 2 TIMES A DAY PO
     Route: 048
     Dates: start: 20010601, end: 20090301

REACTIONS (9)
  - ANGER [None]
  - ILEUS PARALYTIC [None]
  - INTESTINAL OBSTRUCTION [None]
  - LUNG DISORDER [None]
  - PARALYSIS [None]
  - PHARYNGEAL DISORDER [None]
  - PNEUMONIA [None]
  - SWELLING [None]
  - SWOLLEN TONGUE [None]
